FAERS Safety Report 9369759 (Version 4)
Quarter: 2014Q1

REPORT INFORMATION
  Report Type: Report from Study
  Country: FR (occurrence: FR)
  Receive Date: 20130626
  Receipt Date: 20140211
  Transmission Date: 20141002
  Serious: Yes (Hospitalization)
  Sender: FDA-Public Use
  Company Number: FR-ASTELLAS-2013US006595

PATIENT
  Age: 72 Year
  Sex: Male

DRUGS (4)
  1. ERLOTINIB TABLET [Suspect]
     Indication: NON-SMALL CELL LUNG CANCER
     Dosage: 150, UID/QD
     Route: 048
     Dates: start: 20121008
  2. ESOMEPRAZOLE [Concomitant]
     Indication: ULCER
     Dosage: 40 MG, BID
     Route: 048
  3. MORPHINE [Concomitant]
     Indication: BONE PAIN
     Dosage: 10 MG, PRN
     Route: 065
  4. AMOXICILLINE                       /00249602/ [Concomitant]
     Indication: PRODUCT USED FOR UNKNOWN INDICATION
     Dosage: 1 G, BID
     Route: 065
     Dates: end: 20121127

REACTIONS (1)
  - Acute coronary syndrome [Recovered/Resolved]
